FAERS Safety Report 12684022 (Version 1)
Quarter: 2016Q3

REPORT INFORMATION
  Report Type: Spontaneous
  Country: US (occurrence: US)
  Receive Date: 20160825
  Receipt Date: 20160825
  Transmission Date: 20161109
  Serious: No
  Sender: FDA-Public Use
  Company Number: US-ALLERGAN-1662933US

PATIENT
  Age: 46 Year
  Sex: Male
  Weight: 133.79 kg

DRUGS (2)
  1. ANDRODERM [Suspect]
     Active Substance: TESTOSTERONE
     Indication: ANDROGEN REPLACEMENT THERAPY
     Dosage: 4 MG, QD
     Route: 062
     Dates: start: 201607
  2. EFFEXOR [Concomitant]
     Active Substance: VENLAFAXINE HYDROCHLORIDE
     Indication: SERUM SEROTONIN DECREASED
     Dosage: UNK
     Route: 048

REACTIONS (6)
  - Erectile dysfunction [Unknown]
  - Testicular pain [Not Recovered/Not Resolved]
  - Testicular disorder [Recovered/Resolved]
  - Mood altered [Not Recovered/Not Resolved]
  - Penis disorder [Unknown]
  - Agitation [Unknown]
